FAERS Safety Report 6689112-X (Version None)
Quarter: 2010Q2

REPORT INFORMATION
  Report Type: 
  Country: None (occurrence: None)
  Receive Date: 20100412
  Receipt Date: 20100105
  Transmission Date: 20101027
  Serious: No
  Sender: FDA-Public Use
  Company Number: 1000011109

PATIENT
  Age: 52 Year
  Sex: Male

DRUGS (2)
  1. BYSTOLIC [Suspect]
     Indication: HYPERTENSION
     Dosage: 5 MG (5 MG, 1 IN 1 D), ORAL
     Route: 048
     Dates: start: 20091228
  2. ASPIRIN [Concomitant]

REACTIONS (2)
  - FATIGUE [None]
  - HEART RATE INCREASED [None]
